FAERS Safety Report 12013371 (Version 8)
Quarter: 2016Q2

REPORT INFORMATION
  Report Type: Report from Study
  Country: US (occurrence: US)
  Receive Date: 20160205
  Receipt Date: 20160616
  Transmission Date: 20160815
  Serious: Yes (Death, Hospitalization)
  Sender: FDA-Public Use
  Company Number: US-ACTELION-A-NJ2016-131008

PATIENT
  Age: 66 Year
  Sex: Female
  Weight: 103.86 kg

DRUGS (5)
  1. OPSUMIT [Suspect]
     Active Substance: MACITENTAN
     Indication: PULMONARY ARTERIAL HYPERTENSION
     Dosage: 10 MG, QD
     Route: 048
     Dates: start: 20140327, end: 20160605
  2. TYVASO [Concomitant]
     Active Substance: TREPROSTINIL
     Dosage: 7 BREATHS, QID
     Route: 055
  3. UPTRAVI [Suspect]
     Active Substance: SELEXIPAG
     Indication: PULMONARY ARTERIAL HYPERTENSION
     Dosage: 200 MCG, BID
     Route: 048
     Dates: start: 20160119
  4. RIOCIGUAT [Concomitant]
     Active Substance: RIOCIGUAT
  5. OXYGEN. [Concomitant]
     Active Substance: OXYGEN

REACTIONS (19)
  - Haemoglobin decreased [Unknown]
  - Nausea [Recovered/Resolved]
  - Obesity [Unknown]
  - Dizziness [Unknown]
  - Pulmonary arterial hypertension [Unknown]
  - Acute kidney injury [Unknown]
  - Dialysis [Unknown]
  - Anaemia [Unknown]
  - Fatigue [Unknown]
  - Oedema [Unknown]
  - Death [Fatal]
  - Oxygen saturation decreased [Unknown]
  - Dyspnoea [Unknown]
  - Malaise [Unknown]
  - Headache [Recovered/Resolved]
  - Fall [Unknown]
  - Swelling [Unknown]
  - Restless legs syndrome [Unknown]
  - Hypoxia [Unknown]

NARRATIVE: CASE EVENT DATE: 201511
